FAERS Safety Report 9097693 (Version 1)
Quarter: 2013Q1

REPORT INFORMATION
  Report Type: Spontaneous
  Country: FR (occurrence: FR)
  Receive Date: 20130212
  Receipt Date: 20130212
  Transmission Date: 20140127
  Serious: Yes (Hospitalization)
  Sender: FDA-Public Use
  Company Number: PHHY2013FR012717

PATIENT
  Age: 83 Year
  Sex: Female

DRUGS (1)
  1. EXELON PATCH [Suspect]
     Dosage: UNK
     Route: 062
     Dates: start: 201211

REACTIONS (4)
  - Abnormal behaviour [Recovered/Resolved]
  - Circadian rhythm sleep disorder [Recovered/Resolved]
  - Negativism [Recovered/Resolved]
  - Agitation [Recovered/Resolved]
